FAERS Safety Report 6992307-9 (Version None)
Quarter: 2010Q3

REPORT INFORMATION
  Report Type: 
  Country: None (occurrence: None)
  Receive Date: 20100915
  Receipt Date: 20100915
  Transmission Date: 20110219
  Serious: Yes (Other)
  Sender: FDA-Public Use
  Company Number: None

PATIENT
  Age: 36 Year
  Sex: Male
  Weight: 117.5 kg

DRUGS (1)
  1. HUMIRA [Suspect]
     Indication: PSORIASIS
     Dosage: 40 MG EVERY OTHER WEEK SUBCUTANEOUS, 18 MONTHS DURATION ENDING 6 /2/10
     Route: 058
     Dates: end: 20100602

REACTIONS (6)
  - BACK PAIN [None]
  - CHEST PAIN [None]
  - HODGKIN'S DISEASE NODULAR SCLEROSIS STAGE UNSPECIFIED [None]
  - HODGKIN'S DISEASE STAGE II [None]
  - LYMPHADENOPATHY MEDIASTINAL [None]
  - MUSCULOSKELETAL PAIN [None]
